FAERS Safety Report 9381539 (Version 2)
Quarter: 2013Q3

REPORT INFORMATION
  Report Type: Spontaneous
  Country: AT (occurrence: AT)
  Receive Date: 20130703
  Receipt Date: 20130912
  Transmission Date: 20140515
  Serious: Yes (Other)
  Sender: FDA-Public Use
  Company Number: AT-JNJFOC-20130612445

PATIENT
  Age: 27 Year
  Sex: Male
  Weight: 116 kg

DRUGS (1)
  1. STELARA [Suspect]
     Indication: PSORIASIS
     Dosage: EVERY THREE MONTHS 90 MG, S.C.
     Route: 058
     Dates: start: 200906, end: 201305

REACTIONS (3)
  - Cytomegalovirus infection [Recovered/Resolved]
  - Leukopenia [Unknown]
  - Bronchitis [Unknown]
